FAERS Safety Report 5358304-4 (Version None)
Quarter: 2007Q2

REPORT INFORMATION
  Report Type: 
  Country: None (occurrence: None)
  Receive Date: 20070614
  Receipt Date: 20070614
  Transmission Date: 20071010
  Serious: Yes (Hospitalization)
  Sender: FDA-Public Use
  Company Number: None

PATIENT
  Age: 73 Year
  Sex: Male

DRUGS (2)
  1. LISINOPRIL [Suspect]
     Indication: CARDIAC FAILURE CONGESTIVE
     Dosage: 10MG EVERY DAY PO
     Route: 048
     Dates: start: 20060118, end: 20070428
  2. FUROSEMIDE [Suspect]
     Indication: CARDIAC FAILURE CONGESTIVE
     Dosage: 80MG BID PO
     Route: 048

REACTIONS (3)
  - FEELING ABNORMAL [None]
  - HYPERKALAEMIA [None]
  - RENAL FAILURE ACUTE [None]
